FAERS Safety Report 5849618-X (Version None)
Quarter: 2008Q3

REPORT INFORMATION
  Report Type: 
  Country: None (occurrence: None)
  Receive Date: 20080819
  Receipt Date: 20080807
  Transmission Date: 20090109
  Serious: Yes (Other)
  Sender: FDA-Public Use
  Company Number: DE-ROCHE-580189

PATIENT
  Age: 76 Year
  Sex: Female

DRUGS (1)
  1. CAPECITABINE [Suspect]
     Dosage: RECEIVED 7 CYCLES.
     Route: 065
     Dates: start: 20071122, end: 20080612

REACTIONS (2)
  - GASTRITIS [None]
  - PERNICIOUS ANAEMIA [None]
